FAERS Safety Report 6878077-3 (Version None)
Quarter: 2010Q2

REPORT INFORMATION
  Report Type: 
  Country: None (occurrence: None)
  Receive Date: 20100616
  Receipt Date: 20090807
  Transmission Date: 20101027
  Serious: No
  Sender: FDA-Public Use
  Company Number: DSA_33971_2009

PATIENT
  Sex: Male

DRUGS (14)
  1. XENAZINE [Suspect]
     Indication: TARDIVE DYSKINESIA
     Dosage: (25 MG TID), (25 MG QID), (25 MG BID)
     Dates: start: 20090708, end: 20090101
  2. XENAZINE [Suspect]
     Indication: TARDIVE DYSKINESIA
     Dosage: (25 MG TID), (25 MG QID), (25 MG BID)
     Dates: start: 20090701, end: 20090707
  3. XENAZINE [Suspect]
     Indication: TARDIVE DYSKINESIA
     Dosage: (25 MG TID), (25 MG QID), (25 MG BID)
     Dates: start: 20090101
  4. MAXAIR [Concomitant]
  5. FLOVENT [Concomitant]
  6. ASPIRIN [Concomitant]
  7. LISINOPRIL [Concomitant]
  8. ATIVAN [Concomitant]
  9. ALBUTEROL [Concomitant]
  10. ROBITUSSIN /00048001/ [Concomitant]
  11. FIBERCON /00567702/ [Concomitant]
  12. ASTELIN [Concomitant]
  13. DIACON [Concomitant]
  14. ATROVENT [Concomitant]

REACTIONS (3)
  - DIZZINESS [None]
  - FATIGUE [None]
  - NAUSEA [None]
